FAERS Safety Report 7682251-6 (Version None)
Quarter: 2011Q3

REPORT INFORMATION
  Report Type: 
  Country: None (occurrence: None)
  Receive Date: 20110815
  Receipt Date: 20110805
  Transmission Date: 20111222
  Serious: Yes (Hospitalization)
  Sender: FDA-Public Use
  Company Number: FR-US-EMD SERONO, INC.-7075503

PATIENT
  Sex: Male

DRUGS (2)
  1. REBIF [Suspect]
     Dosage: 3X44MCG
     Route: 058
     Dates: start: 20110727, end: 20110727
  2. REBIF [Suspect]
     Indication: MULTIPLE SCLEROSIS
     Route: 058

REACTIONS (4)
  - ACCIDENTAL OVERDOSE [None]
  - PYREXIA [None]
  - INJECTION SITE INFLAMMATION [None]
  - URINARY TRACT INFECTION [None]
